FAERS Safety Report 26047349 (Version 1)
Quarter: 2025Q4

REPORT INFORMATION
  Report Type: Spontaneous
  Country: US (occurrence: US)
  Receive Date: 20251114
  Receipt Date: 20251114
  Transmission Date: 20260117
  Serious: Yes (Other)
  Sender: PFIZER
  Company Number: US-PFIZER INC-PV202500133602

PATIENT
  Age: 80 Year

DRUGS (1)
  1. NORPACE CR [Suspect]
     Active Substance: DISOPYRAMIDE PHOSPHATE
     Dosage: UNK

REACTIONS (1)
  - Blindness unilateral [Unknown]
